FAERS Safety Report 22071410 (Version 1)
Quarter: 2023Q1

REPORT INFORMATION
  Report Type: Spontaneous
  Country: TH (occurrence: TH)
  Receive Date: 20230307
  Receipt Date: 20230307
  Transmission Date: 20230418
  Serious: Yes (Hospitalization)
  Sender: FDA-Public Use
  Company Number: TH-WOODWARD-2023-TH-000005

PATIENT
  Age: 61 Year
  Sex: Male
  Weight: 66.7 kg

DRUGS (2)
  1. RABEPRAZOLE SODIUM [Suspect]
     Active Substance: RABEPRAZOLE SODIUM
     Indication: Gastrooesophageal reflux disease
     Dosage: (20 MG,1 D)
     Route: 048
     Dates: start: 20230221, end: 20230222
  2. ITOPRIDE [Concomitant]
     Active Substance: ITOPRIDE
     Dosage: 50 MG,12 HR
     Route: 048
     Dates: start: 20230221

REACTIONS (3)
  - Angioedema [Recovering/Resolving]
  - Pruritus [Recovering/Resolving]
  - Rash [Recovering/Resolving]

NARRATIVE: CASE EVENT DATE: 20230221
